FAERS Safety Report 5329493-2 (Version None)
Quarter: 2007Q2

REPORT INFORMATION
  Report Type: 
  Country: None (occurrence: None)
  Receive Date: 20070227
  Receipt Date: 20060505
  Transmission Date: 20071010
  Serious: Yes (Other)
  Sender: FDA-Public Use
  Company Number: DSA_28128_2006

PATIENT
  Age: 87 Year
  Sex: Female

DRUGS (3)
  1. CARDIZEM CD [Suspect]
     Indication: HYPERTENSION
     Dosage: 180 MG Q DAY PO
     Route: 048
     Dates: start: 19980519
  2. COUMADIN [Concomitant]
  3. ULTRACET [Concomitant]

REACTIONS (1)
  - VISUAL DISTURBANCE [None]
